FAERS Safety Report 25549714 (Version 1)
Quarter: 2025Q3

REPORT INFORMATION
  Report Type: Spontaneous
  Country: CA (occurrence: CA)
  Receive Date: 20250714
  Receipt Date: 20250714
  Transmission Date: 20251021
  Serious: Yes (Other)
  Sender: GE HEALTHCARE
  Company Number: CA-GE HEALTHCARE-2025CSU009063

PATIENT
  Age: 1 Day
  Sex: Female
  Weight: 3 kg

DRUGS (1)
  1. OMNIPAQUE [Suspect]
     Active Substance: IOHEXOL
     Indication: Scan
     Route: 065

REACTIONS (5)
  - Contrast media toxicity [Recovered/Resolved]
  - Neonatal intestinal dilatation [Recovered/Resolved]
  - Intestinal atony [Recovered/Resolved]
  - Product residue present [Recovered/Resolved]
  - Hypothyroidism [Recovered/Resolved]
